FAERS Safety Report 7559492-1 (Version None)
Quarter: 2011Q2

REPORT INFORMATION
  Report Type: 
  Country: None (occurrence: None)
  Receive Date: 20110621
  Receipt Date: 20110613
  Transmission Date: 20111010
  Serious: Yes (Other)
  Sender: FDA-Public Use
  Company Number: GB-NOVOPROD-329608

PATIENT
  Age: 53 Year
  Sex: Female

DRUGS (5)
  1. VAGIFEM [Suspect]
     Indication: PRODUCT USED FOR UNKNOWN INDICATION
  2. BUPIVACAINE HCL [Suspect]
     Dosage: 2.5 ML OF HEAVY 0.5 %
  3. BENDROFLUAZIDE [Concomitant]
  4. DIAMORPHINE [Suspect]
     Dosage: 300 MCG
  5. DEXAMETHASONE [Suspect]

REACTIONS (1)
  - MYOCLONUS [None]
